FAERS Safety Report 5485092-3 (Version None)
Quarter: 2007Q4

REPORT INFORMATION
  Report Type: 
  Country: None (occurrence: None)
  Receive Date: 20071015
  Receipt Date: 20071010
  Transmission Date: 20080405
  Serious: Yes (Death)
  Sender: FDA-Public Use
  Company Number: PHHO2007MX16812

PATIENT
  Age: 1 Year
  Sex: Female

DRUGS (1)
  1. TRILEPTAL [Suspect]
     Indication: EPILEPSY
     Dates: start: 20070601

REACTIONS (1)
  - CONVULSION [None]
